FAERS Safety Report 10162208 (Version 1)
Quarter: 2014Q2

REPORT INFORMATION
  Report Type: Spontaneous
  Country: US (occurrence: None)
  Receive Date: 20140508
  Receipt Date: 20140508
  Transmission Date: 20141212
  Serious: Yes (Hospitalization)
  Sender: FDA-Public Use
  Company Number: None

PATIENT
  Age: 42 Year
  Sex: Female

DRUGS (3)
  1. PEGASYS [Suspect]
     Indication: HEPATITIS C
     Route: 058
  2. RIBAPAK [Suspect]
     Indication: HEPATITIS C
     Route: 048
  3. SOVALDI [Concomitant]

REACTIONS (3)
  - Dehydration [None]
  - Nausea [None]
  - Vomiting [None]
